FAERS Safety Report 9947340 (Version 1)
Quarter: 2014Q1

REPORT INFORMATION
  Report Type: Report from Study
  Country: US (occurrence: US)
  Receive Date: 20140303
  Receipt Date: 20140303
  Transmission Date: 20141002
  Serious: No
  Sender: FDA-Public Use
  Company Number: US-ABBVIE-13P-163-1065371-00

PATIENT
  Age: 48 Year
  Sex: Female

DRUGS (8)
  1. HUMIRA [Suspect]
     Indication: CROHN^S DISEASE
     Dates: start: 20130313, end: 20130313
  2. ENTOCORT [Concomitant]
     Indication: PRODUCT USED FOR UNKNOWN INDICATION
     Dosage: 6 MG DAILY X 2 WEEKS
  3. ENTOCORT [Concomitant]
     Dosage: 3 MG X 2 WEEKS
  4. PENTASA [Concomitant]
     Indication: CROHN^S DISEASE
     Dosage: 500MG X 2 FOUR TIMES A DAY
  5. PREVACID [Concomitant]
     Indication: GASTROOESOPHAGEAL REFLUX DISEASE
  6. TOPAMAX [Concomitant]
     Indication: MIGRAINE
     Dosage: 15 MG DAILY
  7. ZOLOFT [Concomitant]
     Indication: DEPRESSION
     Dosage: 50 MG DAILY
  8. VITAMIN SUPPLEMENTS OVER THE COUNTER [Concomitant]
     Indication: PRODUCT USED FOR UNKNOWN INDICATION

REACTIONS (4)
  - Dysgeusia [Recovering/Resolving]
  - Paraesthesia oral [Recovering/Resolving]
  - Abdominal tenderness [Recovering/Resolving]
  - Abdominal distension [Recovering/Resolving]
